FAERS Safety Report 13786660 (Version 1)
Quarter: 2017Q3

REPORT INFORMATION
  Report Type: Spontaneous
  Country: US (occurrence: US)
  Receive Date: 20170725
  Receipt Date: 20170725
  Transmission Date: 20171127
  Serious: No
  Sender: FDA-Public Use
  Company Number: US-JNJFOC-20160302123

PATIENT
  Age: 75 Year
  Sex: Male
  Weight: 82.5 kg

DRUGS (1)
  1. YONDELIS [Suspect]
     Active Substance: TRABECTEDIN
     Indication: SOFT TISSUE SARCOMA
     Dosage: 2.34 MG VIAL, TOTAL NUMBER OF CYCLES 2. TOTAL DOSE 4.608 MG.
     Route: 042
     Dates: start: 20160301, end: 20160418

REACTIONS (1)
  - Device malfunction [Unknown]

NARRATIVE: CASE EVENT DATE: 20160229
